FAERS Safety Report 6666909-3 (Version None)
Quarter: 2010Q2

REPORT INFORMATION
  Report Type: 
  Country: None (occurrence: None)
  Receive Date: 20100405
  Receipt Date: 20100322
  Transmission Date: 20101027
  Serious: Yes (Other)
  Sender: FDA-Public Use
  Company Number: PHHY2010CR17002

PATIENT
  Age: 13 Year
  Sex: Male

DRUGS (1)
  1. EXJADE [Suspect]
     Indication: THALASSAEMIA BETA
     Dosage: 500 MG, QD
     Route: 048

REACTIONS (11)
  - BLOOD SODIUM DECREASED [None]
  - BLOOD URINE PRESENT [None]
  - FATIGUE [None]
  - HEPATOMEGALY [None]
  - JAUNDICE [None]
  - LYMPHADENOPATHY [None]
  - OEDEMA PERIPHERAL [None]
  - PLATELET COUNT INCREASED [None]
  - TRANSAMINASES INCREASED [None]
  - URINARY TRACT INFECTION BACTERIAL [None]
  - WHITE BLOOD CELL COUNT INCREASED [None]
